FAERS Safety Report 5306180-8 (Version None)
Quarter: 2007Q2

REPORT INFORMATION
  Report Type: 
  Country: None (occurrence: None)
  Receive Date: 20070424
  Receipt Date: 20070411
  Transmission Date: 20071010
  Serious: Yes (Hospitalization)
  Sender: FDA-Public Use
  Company Number: PTWYE288530MAR07

PATIENT
  Sex: Female
  Weight: 70 kg

DRUGS (9)
  1. EFFEXOR XR [Suspect]
     Indication: DEPRESSION
     Route: 048
     Dates: start: 20050101, end: 20070303
  2. BIPERIDEN LACTATE [Concomitant]
     Route: 030
     Dates: end: 20070215
  3. LOSARTAN/HYDROCHLOROTHIAZIDE [Interacting]
     Indication: HYPERTENSION
     Dosage: 50 MG + 12.5 MG
     Route: 048
     Dates: end: 20070215
  4. CALCIUM CARBONATE/COLECALCIFEROL [Concomitant]
     Route: 048
  5. TRAMADOL HCL [Concomitant]
     Indication: BONE PAIN
     Dosage: UNKNOWN
     Route: 048
     Dates: end: 20070215
  6. DOMPERIDONE [Concomitant]
     Indication: NAUSEA
     Dosage: UNKNOWN
     Route: 048
     Dates: end: 20070215
  7. NEBIVOLOL HYDROCHLORIDE [Concomitant]
     Indication: HYPERTENSION
     Dosage: UNKNOWN
     Route: 048
     Dates: end: 20070215
  8. BIPERIDEN HYDROCHLORIDE [Concomitant]
     Indication: DEPRESSION
     Route: 048
     Dates: end: 20070215
  9. FLUPHENAZINE [Concomitant]
     Indication: NAUSEA
     Dosage: UNKNOWN
     Route: 030

REACTIONS (2)
  - HUMERUS FRACTURE [None]
  - INAPPROPRIATE ANTIDIURETIC HORMONE SECRETION [None]
